FAERS Safety Report 14401931 (Version 1)
Quarter: 2018Q1

REPORT INFORMATION
  Report Type: Spontaneous
  Country: US (occurrence: US)
  Receive Date: 20180116
  Receipt Date: 20180116
  Transmission Date: 20180509
  Serious: Yes (Disabling)
  Sender: FDA-Public Use
  Company Number: None

PATIENT
  Sex: Female
  Weight: 42.3 kg

DRUGS (3)
  1. MULTI-VITAMIN [Concomitant]
     Active Substance: .ALPHA.-TOCOPHEROL ACETATE, DL-\ASCORBIC ACID\CYANOCOBALAMIN\FLUORIDE ION\FOLIC ACID\NIACIN\PYRIDOXINE\RIBOFLAVIN\THIAMINE\VITAMIN A\VITAMIN D
  2. CIPROFLOXACIN. [Suspect]
     Active Substance: CIPROFLOXACIN
     Indication: URINARY TRACT INFECTION
     Dosage: ?          QUANTITY:20 TABLET(S);?
     Route: 048
     Dates: start: 20160526, end: 20160602
  3. RANITADINE [Concomitant]

REACTIONS (17)
  - Motor dysfunction [None]
  - Visual impairment [None]
  - Neuropathy peripheral [None]
  - Muscular weakness [None]
  - Vomiting [None]
  - Food allergy [None]
  - Reaction to food additive [None]
  - Weight decreased [None]
  - Fatigue [None]
  - Tremor [None]
  - Tendonitis [None]
  - Impaired work ability [None]
  - Muscle atrophy [None]
  - Faeces discoloured [None]
  - Asthenia [None]
  - Diarrhoea [None]
  - Pain [None]

NARRATIVE: CASE EVENT DATE: 20160602
